FAERS Safety Report 7608885-2 (Version None)
Quarter: 2011Q3

REPORT INFORMATION
  Report Type: 
  Country: None (occurrence: None)
  Receive Date: 20110714
  Receipt Date: 20110712
  Transmission Date: 20111222
  Serious: Yes (Other)
  Sender: FDA-Public Use
  Company Number: US-GLAXOSMITHKLINE-A0936444A

PATIENT
  Age: 43 Year
  Sex: Male

DRUGS (2)
  1. COUMADIN [Concomitant]
  2. NICODERM CQ [Suspect]
     Indication: SMOKING CESSATION THERAPY
     Route: 062
     Dates: start: 20110620

REACTIONS (3)
  - EXPIRED DRUG ADMINISTERED [None]
  - NICOTINE DEPENDENCE [None]
  - THROMBOSIS [None]
